FAERS Safety Report 21536398 (Version 1)
Quarter: 2022Q4

REPORT INFORMATION
  Report Type: Report from Study
  Country: CA (occurrence: CA)
  Receive Date: 20221101
  Receipt Date: 20221101
  Transmission Date: 20230113
  Serious: Yes (Death, Hospitalization, Other)
  Sender: FDA-Public Use
  Company Number: CA-GILEAD-2022-0602110

PATIENT
  Sex: Female

DRUGS (4)
  1. SACITUZUMAB GOVITECAN [Suspect]
     Active Substance: SACITUZUMAB GOVITECAN
     Indication: Triple negative breast cancer
     Dosage: 660 MG
     Route: 042
     Dates: start: 20220908, end: 20221014
  2. SACITUZUMAB GOVITECAN [Suspect]
     Active Substance: SACITUZUMAB GOVITECAN
     Dosage: 490 MG
     Route: 042
  3. TAXOL [Concomitant]
     Active Substance: PACLITAXEL
  4. DOXORUBICIN HYDROCHLORIDE [Concomitant]
     Active Substance: DOXORUBICIN HYDROCHLORIDE

REACTIONS (5)
  - Death [Fatal]
  - Asthenia [Unknown]
  - Dyspnoea [Unknown]
  - Hepatic function abnormal [Recovering/Resolving]
  - Intentional product use issue [Unknown]
